FAERS Safety Report 9820714 (Version 1)
Quarter: 2014Q1

REPORT INFORMATION
  Report Type: Spontaneous
  Country: FR (occurrence: FR)
  Receive Date: 20140116
  Receipt Date: 20140116
  Transmission Date: 20141002
  Serious: Yes (Hospitalization)
  Sender: FDA-Public Use
  Company Number: FR-ELI_LILLY_AND_COMPANY-FR201401001465

PATIENT
  Age: 65 Year
  Sex: Male

DRUGS (2)
  1. EFIENT [Suspect]
     Indication: PRODUCT USED FOR UNKNOWN INDICATION
     Dosage: 10 MG, QD
     Route: 048
     Dates: start: 20131107, end: 20131112
  2. IOMERON [Suspect]
     Indication: PRODUCT USED FOR UNKNOWN INDICATION
     Dosage: 1 DF, UNKNOWN
     Route: 042
     Dates: start: 20131107, end: 20131107

REACTIONS (3)
  - Rash maculo-papular [Unknown]
  - Hyperthermia [Unknown]
  - Eosinophilia [Unknown]
